FAERS Safety Report 6755900-4 (Version None)
Quarter: 2010Q2

REPORT INFORMATION
  Report Type: 
  Country: None (occurrence: None)
  Receive Date: 20100603
  Receipt Date: 20100603
  Transmission Date: 20101027
  Serious: No
  Sender: FDA-Public Use
  Company Number: None

PATIENT
  Age: 53 Year
  Sex: Female
  Weight: 65.7716 kg

DRUGS (1)
  1. CIPRO [Suspect]

REACTIONS (3)
  - HAEMATOMA [None]
  - HAEMORRHAGE [None]
  - MUSCLE RUPTURE [None]
